FAERS Safety Report 20178020 (Version 1)
Quarter: 2021Q4

REPORT INFORMATION
  Report Type: Spontaneous
  Country: ZA (occurrence: ZA)
  Receive Date: 20211213
  Receipt Date: 20211213
  Transmission Date: 20220303
  Serious: Yes (Hospitalization)
  Sender: FDA-Public Use
  Company Number: ZA-PFIZER INC-2018306882

PATIENT
  Age: 14 Year
  Sex: Female

DRUGS (4)
  1. METHOTREXATE [Suspect]
     Active Substance: METHOTREXATE
     Indication: Juvenile idiopathic arthritis
     Dosage: UNK
     Dates: start: 2012, end: 2014
  2. CHLOROQUINE SULFATE [Suspect]
     Active Substance: CHLOROQUINE SULFATE
     Indication: Juvenile idiopathic arthritis
     Dosage: 200 MG, DAILY
     Dates: start: 2012
  3. ARAVA [Suspect]
     Active Substance: LEFLUNOMIDE
     Indication: Juvenile idiopathic arthritis
     Dosage: 20 MG, DAILY
     Dates: start: 2012
  4. ENBREL [Concomitant]
     Active Substance: ETANERCEPT
     Indication: Juvenile idiopathic arthritis
     Dosage: 50 MG, WEEKLY
     Route: 058
     Dates: start: 20140205

REACTIONS (3)
  - Depression [Unknown]
  - Therapeutic product effect incomplete [Unknown]
  - Mood altered [Unknown]

NARRATIVE: CASE EVENT DATE: 20130901
